FAERS Safety Report 5536098-7 (Version None)
Quarter: 2007Q4

REPORT INFORMATION
  Report Type: 
  Country: None (occurrence: None)
  Receive Date: 20071206
  Receipt Date: 20071127
  Transmission Date: 20080405
  Serious: Yes (Life-Threatening)
  Sender: FDA-Public Use
  Company Number: JP-SANOFI-SYNTHELABO-A01200712477

PATIENT
  Age: 64 Year
  Sex: Male

DRUGS (12)
  1. FRESH-FROZEN HUMAN PLASMA [Concomitant]
     Indication: HAEMOSTASIS
     Route: 042
     Dates: start: 20071011, end: 20071011
  2. FRESH-FROZEN HUMAN PLASMA [Concomitant]
     Route: 042
     Dates: start: 20071012, end: 20071012
  3. NIFEDIPINE [Concomitant]
     Indication: BLOOD PRESSURE INCREASED
     Route: 048
     Dates: start: 20071010, end: 20071016
  4. AMLODIPINE BESYLATE [Concomitant]
     Indication: BLOOD PRESSURE INCREASED
     Route: 048
     Dates: start: 20071010, end: 20071016
  5. CARBAZOCHROME SODIUM SULFONATE [Concomitant]
     Indication: HAEMOSTASIS
     Route: 042
     Dates: start: 20071010, end: 20071010
  6. CONCENTRATED HUMAN RED BLOOD CELLS [Concomitant]
     Indication: HAEMOSTASIS
     Route: 042
     Dates: start: 20071010, end: 20071010
  7. CALCIUM GLUCONATE [Concomitant]
     Indication: PREMEDICATION
     Route: 042
     Dates: start: 20060821, end: 20071010
  8. AZASETRON HYDRCHLORIDE [Concomitant]
     Indication: PREMEDICATION
     Route: 042
     Dates: start: 20060821, end: 20071010
  9. DEXAMETHASONE SODIUM PHOSPHATE [Concomitant]
     Indication: PREMEDICATION
     Route: 042
     Dates: start: 20060821, end: 20071010
  10. FLUOROURACIL [Concomitant]
     Indication: RECTAL CANCER
     Dosage: 750 MG/BODY=426.1 MG/M2 BOLUS THEN 1000 MG/BODY=568.2 MG/M2 CIV D1-2
     Route: 042
     Dates: start: 20070919, end: 20070920
  11. LEUCOVORIN CALCIUM [Concomitant]
     Dosage: 175 MG/BODY=99.4 MG/M2 D1-2
     Route: 042
     Dates: start: 20071010, end: 20071010
  12. ELPLAT [Suspect]
     Indication: RECTAL CANCER
     Dosage: 140 MG/BODY=79.5 MG/M2 D1
     Route: 041
     Dates: start: 20071010, end: 20071010

REACTIONS (2)
  - LEUKOPENIA [None]
  - THROMBOCYTOPENIA [None]
